FAERS Safety Report 18915493 (Version 1)
Quarter: 2021Q1

REPORT INFORMATION
  Report Type: Spontaneous
  Country: US (occurrence: US)
  Receive Date: 20210219
  Receipt Date: 20210219
  Transmission Date: 20210420
  Serious: Yes (Hospitalization)
  Sender: FDA-Public Use
  Company Number: None

PATIENT
  Age: 75 Year
  Sex: Female
  Weight: 62.7 kg

DRUGS (1)
  1. CARBOPLATIN. [Suspect]
     Active Substance: CARBOPLATIN
     Dates: end: 20210201

REACTIONS (5)
  - Disorientation [None]
  - Ataxia [None]
  - Somnolence [None]
  - Immobile [None]
  - Pain [None]

NARRATIVE: CASE EVENT DATE: 20210206
